FAERS Safety Report 8952558 (Version 1)
Quarter: 2012Q4

REPORT INFORMATION
  Report Type: 
  Country: DE (occurrence: DE)
  Receive Date: 20121205
  Receipt Date: 20121205
  Transmission Date: 20130627
  Serious: Yes (Other)
  Sender: FDA-Public Use
  Company Number: DE-UCBSA-071517

PATIENT
  Age: 49 Year
  Sex: Male
  Weight: 120 kg

DRUGS (8)
  1. VIMPAT [Suspect]
     Dosage: TOTAL AMOUNT: 150 MG (1 TAB)
     Route: 048
     Dates: start: 20121113
  2. KEPPRA [Suspect]
     Dosage: TOTAL AMOUNT: 1500 MG (3 TAB)
     Route: 048
     Dates: start: 20121113
  3. LIORESAL [Suspect]
     Dosage: TOTAL AMOUNT: 20 MG (2 TAB)
     Route: 048
     Dates: start: 20121113
  4. BELOK ZOK MITE [Suspect]
     Dosage: TOTAL AMOUNT: 50 MG (1 TAB)
     Route: 048
     Dates: start: 20121113
  5. LYRICA [Suspect]
     Dosage: UNKNOWN DOSE
     Route: 048
     Dates: start: 20121113
  6. BACLOFEN [Suspect]
     Dosage: UNKNOWN DOSE
     Route: 048
     Dates: start: 20121113
  7. REMERGIL SOLTAB [Suspect]
     Dosage: UNKNOWN DOSE
     Route: 048
     Dates: start: 20121113
  8. CITALOPRAM [Suspect]
     Dosage: UNKNOWN DOSE
     Route: 048
     Dates: start: 20121113

REACTIONS (2)
  - Accidental exposure to product [Recovered/Resolved]
  - Wrong drug administered [None]
